FAERS Safety Report 6637714-9 (Version None)
Quarter: 2010Q1

REPORT INFORMATION
  Report Type: 
  Country: None (occurrence: None)
  Receive Date: 20100315
  Receipt Date: 20100315
  Transmission Date: 20100710
  Serious: Yes (Other)
  Sender: FDA-Public Use
  Company Number: None

PATIENT
  Age: 37 Year
  Sex: Female
  Weight: 65.7716 kg

DRUGS (3)
  1. OXYCODONE HCL [Suspect]
     Indication: FIBROMYALGIA
     Dosage: 1 TABLET EVERY 6 HOURS PO
     Route: 048
     Dates: start: 20091221, end: 20100314
  2. OXYCODONE HCL [Suspect]
     Indication: INTERVERTEBRAL DISC PROTRUSION
     Dosage: 1 TABLET EVERY 6 HOURS PO
     Route: 048
     Dates: start: 20091221, end: 20100314
  3. OXYCODONE HCL [Suspect]
     Indication: PAIN
     Dosage: 1 TABLET EVERY 6 HOURS PO
     Route: 048
     Dates: start: 20091221, end: 20100314

REACTIONS (13)
  - COLD SWEAT [None]
  - FEELING COLD [None]
  - FLUID INTAKE REDUCED [None]
  - HEADACHE [None]
  - HYPERHIDROSIS [None]
  - HYPOPHAGIA [None]
  - MOBILITY DECREASED [None]
  - NAUSEA [None]
  - NECK PAIN [None]
  - PAIN [None]
  - VIRAL INFECTION [None]
  - VOMITING [None]
  - WEIGHT DECREASED [None]
